FAERS Safety Report 23744193 (Version 1)
Quarter: 2024Q2

REPORT INFORMATION
  Report Type: Spontaneous
  Country: PL (occurrence: PL)
  Receive Date: 20240415
  Receipt Date: 20240415
  Transmission Date: 20240716
  Serious: Yes (Hospitalization, Other)
  Sender: FDA-Public Use
  Company Number: PL-SUNPHARMA-2024R1-440897AA

PATIENT
  Age: 24 Year
  Sex: Female

DRUGS (5)
  1. METHYLDOPA [Suspect]
     Active Substance: METHYLDOPA
     Indication: Hypertension
     Route: 065
  2. METOPROLOL [Suspect]
     Active Substance: METOPROLOL
     Indication: Hypertension
     Route: 065
  3. NIFEDIPINE [Suspect]
     Active Substance: NIFEDIPINE
     Indication: Hypertension
     Route: 065
  4. TACROLIMUS [Suspect]
     Active Substance: TACROLIMUS
     Indication: Immunosuppression
     Route: 065
  5. PREDNISONE [Suspect]
     Active Substance: PREDNISONE
     Indication: Immunosuppression
     Route: 065

REACTIONS (6)
  - Pre-eclampsia [Recovering/Resolving]
  - Hypothyroidism [Recovering/Resolving]
  - Exposure during pregnancy [Unknown]
  - HELLP syndrome [Recovering/Resolving]
  - Condition aggravated [Unknown]
  - Premature delivery [Unknown]
